FAERS Safety Report 9607240 (Version 2)
Quarter: 2013Q4

REPORT INFORMATION
  Report Type: Spontaneous
  Country: JP (occurrence: JP)
  Receive Date: 20131009
  Receipt Date: 20131226
  Transmission Date: 20140711
  Serious: Yes (Hospitalization, Other)
  Sender: FDA-Public Use
  Company Number: JP-009507513-1310JPN003467

PATIENT
  Age: 64 Year
  Sex: Female
  Weight: 45 kg

DRUGS (5)
  1. TETRAMIDE TABLETS 10MG [Suspect]
     Indication: DEPRESSION
     Dosage: 20 MG, QD
     Route: 048
     Dates: start: 20130709, end: 20130716
  2. TETRAMIDE TABLETS 10MG [Suspect]
     Indication: INSOMNIA
  3. REFLEX [Suspect]
     Indication: DEPRESSION
     Dosage: 30 MG, QD
     Route: 048
     Dates: start: 20130618, end: 20130708
  4. REFLEX [Suspect]
     Indication: INSOMNIA
     Dosage: 45 MG, QD
     Route: 048
     Dates: start: 20130709, end: 20130715
  5. ROHYPNOL [Concomitant]
     Indication: INSOMNIA
     Dosage: 2 MG, QD
     Route: 048
     Dates: start: 20130618, end: 20130716

REACTIONS (2)
  - Depression [Recovered/Resolved]
  - Convulsion [Recovered/Resolved]
